FAERS Safety Report 12606212 (Version 1)
Quarter: 2016Q3

REPORT INFORMATION
  Report Type: Spontaneous
  Country: US (occurrence: US)
  Receive Date: 20160729
  Receipt Date: 20160729
  Transmission Date: 20161109
  Serious: No
  Sender: FDA-Public Use
  Company Number: US-PFIZER INC-2016272492

PATIENT
  Age: 78 Year
  Sex: Female
  Weight: 147 kg

DRUGS (5)
  1. LABETALOL [Concomitant]
     Active Substance: LABETALOL\LABETALOL HYDROCHLORIDE
     Indication: BLOOD PRESSURE ABNORMAL
     Dosage: 200 MG, 2X/DAY
     Route: 048
  2. TRAMADOL. [Suspect]
     Active Substance: TRAMADOL
     Indication: ARTHRITIS
     Dosage: 50 MG, 2X/DAY (EVERY 12 HOURS)
  3. ADVIL [Suspect]
     Active Substance: IBUPROFEN
     Indication: INFLUENZA
  4. ADVIL [Suspect]
     Active Substance: IBUPROFEN
     Indication: PYREXIA
     Dosage: 200 MG, 3X/DAY (TWICE IN MORNING AND ONCE AT BEDTIME)
     Dates: start: 201605
  5. PERINDOPRIL [Concomitant]
     Active Substance: PERINDOPRIL
     Indication: BLOOD PRESSURE ABNORMAL
     Dosage: 4 MG, 2X/DAY
     Route: 048

REACTIONS (3)
  - Pre-existing condition improved [Unknown]
  - Intentional product misuse [Not Recovered/Not Resolved]
  - Therapeutic response unexpected [Unknown]

NARRATIVE: CASE EVENT DATE: 201605
